FAERS Safety Report 9630973 (Version 2)
Quarter: 2013Q4

REPORT INFORMATION
  Report Type: Spontaneous
  Country: US (occurrence: US)
  Receive Date: 20131018
  Receipt Date: 20131022
  Transmission Date: 20140711
  Serious: Yes (Other)
  Sender: FDA-Public Use
  Company Number: US-JNJFOC-20131007065

PATIENT
  Age: 42 Year
  Sex: Female
  Weight: 61.24 kg

DRUGS (10)
  1. UNSPECIFIED TOPIRAMATE [Suspect]
     Indication: TREMOR
     Dosage: 25 MG + 50 MG
     Route: 048
     Dates: start: 20130904, end: 20130906
  2. UNSPECIFIED TOPIRAMATE [Suspect]
     Indication: TREMOR
     Route: 048
     Dates: start: 20130908, end: 20130911
  3. UNSPECIFIED TOPIRAMATE [Suspect]
     Indication: TREMOR
     Route: 048
     Dates: start: 20130907, end: 20130907
  4. UNSPECIFIED TOPIRAMATE [Suspect]
     Indication: TREMOR
     Route: 048
     Dates: start: 20130828, end: 20130903
  5. TOPIRAMATE [Suspect]
     Indication: TREMOR
     Route: 048
     Dates: start: 20130907, end: 20130907
  6. TOPIRAMATE [Suspect]
     Indication: TREMOR
     Route: 048
     Dates: start: 20130828, end: 20130903
  7. TOPIRAMATE [Suspect]
     Indication: TREMOR
     Route: 048
     Dates: start: 20130904, end: 20130906
  8. TOPIRAMATE [Suspect]
     Indication: TREMOR
     Route: 048
     Dates: start: 20130908, end: 20130911
  9. NICOTINE [Suspect]
     Indication: PRODUCT USED FOR UNKNOWN INDICATION
     Route: 065
     Dates: start: 2010
  10. LAMICTAL [Concomitant]
     Indication: BIPOLAR DISORDER
     Route: 048
     Dates: start: 1998

REACTIONS (19)
  - Respiratory tract infection [Unknown]
  - Convulsion [Unknown]
  - Paraesthesia [Unknown]
  - Adverse event [Unknown]
  - Eye pain [Unknown]
  - Vision blurred [Unknown]
  - Vitreous floaters [Unknown]
  - Tinnitus [Unknown]
  - Tremor [Unknown]
  - Hypoaesthesia [Unknown]
  - Chest pain [Unknown]
  - Anxiety [Unknown]
  - Neck pain [Unknown]
  - Headache [Unknown]
  - Limb discomfort [Unknown]
  - Dry eye [Unknown]
  - Asthenia [Unknown]
  - Off label use [Unknown]
  - Treatment noncompliance [Unknown]
